FAERS Safety Report 9975096 (Version 1)
Quarter: 2014Q1

REPORT INFORMATION
  Report Type: Report from Study
  Country: US (occurrence: US)
  Receive Date: 20140306
  Receipt Date: 20140306
  Transmission Date: 20141002
  Serious: No
  Sender: FDA-Public Use
  Company Number: US-ABBVIE-13P-163-1160091-00

PATIENT
  Sex: Female
  Weight: 61.29 kg

DRUGS (5)
  1. HUMIRA [Suspect]
     Indication: PSORIASIS
     Route: 058
  2. HUMIRA [Suspect]
     Indication: PSORIATIC ARTHROPATHY
     Route: 058
     Dates: start: 20130929
  3. VITAMIN C [Concomitant]
     Indication: PRODUCT USED FOR UNKNOWN INDICATION
  4. BIOTIN [Concomitant]
     Indication: PRODUCT USED FOR UNKNOWN INDICATION
  5. CELEBREX [Concomitant]
     Indication: PRODUCT USED FOR UNKNOWN INDICATION

REACTIONS (8)
  - Throat irritation [Recovering/Resolving]
  - Injection site bruising [Recovered/Resolved]
  - Oropharyngeal pain [Recovering/Resolving]
  - Device malfunction [Recovered/Resolved]
  - Nasal congestion [Recovering/Resolving]
  - Nasopharyngitis [Recovering/Resolving]
  - Influenza [Recovered/Resolved]
  - Injection site pain [Recovered/Resolved]
